FAERS Safety Report 16710100 (Version 2)
Quarter: 2019Q3

REPORT INFORMATION
  Report Type: Report from Study
  Country: MX (occurrence: MX)
  Receive Date: 20190816
  Receipt Date: 20190903
  Transmission Date: 20191004
  Serious: Yes (Other)
  Sender: FDA-Public Use
  Company Number: PHHY2019MX191023

PATIENT
  Age: 71 Year
  Sex: Male
  Weight: 68 kg

DRUGS (9)
  1. REVOLADE [Suspect]
     Active Substance: ELTROMBOPAG
     Dosage: 0.5 DF, Q48H
     Route: 048
     Dates: start: 201806
  2. MIFLONIDE BREEZHALER [Suspect]
     Active Substance: BUDESONIDE
     Indication: PRODUCT USED FOR UNKNOWN INDICATION
     Dosage: 1 (200 MCG) QD
     Route: 048
  3. METICORTEN [Concomitant]
     Active Substance: PREDNISONE
     Dosage: 0.5 DF, QD
     Route: 048
  4. METICORTEN [Concomitant]
     Active Substance: PREDNISONE
     Indication: PRODUCT USED FOR UNKNOWN INDICATION
     Dosage: 1 DF, QD
     Route: 048
  5. REVOLADE [Suspect]
     Active Substance: ELTROMBOPAG
     Dosage: 0.5 DF, Q72H
     Route: 048
  6. ULTIBRO BREEZHALER [Suspect]
     Active Substance: GLYCOPYRRONIUM\INDACATEROL
     Indication: PULMONARY FIBROSIS
     Dosage: 1 DF, QD (STARTED 4 YEARS AGO)
     Route: 055
  7. REVOLADE [Suspect]
     Active Substance: ELTROMBOPAG
     Indication: CHRONIC MYELOMONOCYTIC LEUKAEMIA
     Dosage: 1.5 DF, UNK
     Route: 048
     Dates: start: 201806
  8. PREGABALIN. [Concomitant]
     Active Substance: PREGABALIN
     Indication: PRODUCT USED FOR UNKNOWN INDICATION
     Dosage: 1 DF, QD
     Route: 048
  9. CANDESARTAN. [Concomitant]
     Active Substance: CANDESARTAN
     Indication: HYPERTENSION
     Dosage: 1 DF, QD
     Route: 048

REACTIONS (5)
  - Aneurysm [Unknown]
  - Product use in unapproved indication [Unknown]
  - Platelet count decreased [Unknown]
  - Inappropriate schedule of product administration [Unknown]
  - Wrong technique in product usage process [Unknown]

NARRATIVE: CASE EVENT DATE: 201901
